FAERS Safety Report 7032067-9 (Version None)
Quarter: 2010Q4

REPORT INFORMATION
  Report Type: 
  Country: None (occurrence: None)
  Receive Date: 20101007
  Receipt Date: 20100927
  Transmission Date: 20110411
  Serious: Yes (Other)
  Sender: FDA-Public Use
  Company Number: US-ELI_LILLY_AND_COMPANY-US201009007527

PATIENT
  Age: 59 Year
  Sex: Male
  Weight: 113.38 kg

DRUGS (9)
  1. EFFIENT [Suspect]
     Indication: ANGINA UNSTABLE
     Dosage: 10 MG, UNK
     Dates: start: 20100917, end: 20100927
  2. COREG [Concomitant]
  3. FISH OIL [Concomitant]
  4. GLUCOSAMINE [Concomitant]
  5. MULTI-VITAMIN [Concomitant]
  6. ASPIRIN [Concomitant]
  7. VITAMIN B COMPLEX CAP [Concomitant]
  8. PERINDOPRIL [Concomitant]
  9. LOZOL [Concomitant]

REACTIONS (1)
  - PRESYNCOPE [None]
